FAERS Safety Report 7018923-6 (Version None)
Quarter: 2010Q3

REPORT INFORMATION
  Report Type: 
  Country: None (occurrence: None)
  Receive Date: 20100928
  Receipt Date: 20100913
  Transmission Date: 20110219
  Serious: Yes (Hospitalization)
  Sender: FDA-Public Use
  Company Number: GB-GENENTECH-306748

PATIENT
  Age: 67 Year
  Sex: Female

DRUGS (8)
  1. RITUXIMAB [Suspect]
     Indication: RHEUMATOID ARTHRITIS
     Dosage: 1000 MG, UNK
     Route: 042
     Dates: start: 20100809, end: 20100823
  2. CO-DYDRAMOL [Concomitant]
     Indication: PAIN
     Dosage: UNK
     Route: 048
  3. FEXOFENADINE HCL [Concomitant]
     Indication: HYPERSENSITIVITY
     Dosage: 120 MG, QAM
     Route: 048
  4. IBUPROFEN [Concomitant]
     Indication: INFLAMMATION
     Dosage: 800 MG, BID
     Route: 048
  5. LEFLUNOMIDE [Concomitant]
     Indication: RHEUMATOID ARTHRITIS
     Dosage: 20 MG, QAM
     Route: 048
     Dates: start: 20080101
  6. NASACORT [Concomitant]
     Indication: HYPERSENSITIVITY
     Dosage: 55 A?G, UNK
  7. OMEPRAZOLE [Concomitant]
     Indication: PRODUCT USED FOR UNKNOWN INDICATION
     Dosage: 40 MG, QAM
  8. VENTOLIN [Concomitant]
     Indication: ASTHMA
     Dosage: 2 DF, UNK
     Route: 055

REACTIONS (2)
  - DIARRHOEA [None]
  - VOMITING [None]
